FAERS Safety Report 4945144-0 (Version None)
Quarter: 2006Q1

REPORT INFORMATION
  Report Type: 
  Country: None (occurrence: None)
  Receive Date: 20060117
  Receipt Date: 20050714
  Transmission Date: 20060701
  Serious: Yes (Hospitalization)
  Sender: FDA-Public Use
  Company Number: 05P-163-0305928-00

PATIENT
  Age: 60 Year
  Sex: Male
  Weight: 52.6173 kg

DRUGS (10)
  1. DILAUDID [Suspect]
     Indication: PAIN
     Dates: start: 20050614, end: 20050615
  2. IRINOTECAN HCL [Suspect]
     Indication: ADENOCARCINOMA
     Dosage: 159 MG, 1 IN 1 D, INTRAVENOUS
     Route: 042
     Dates: start: 20050601, end: 20050601
  3. GEMCITABINE [Suspect]
     Indication: ADENOCARCINOMA
     Dosage: 1590 MG, 1 IN 1 D, INTRAVENOUS
     Route: 042
     Dates: start: 20050601, end: 20050601
  4. PACLITAXEL [Suspect]
     Indication: ADENOCARCINOMA
     Dosage: 342 MG, 1 IN 1 D, INTRAVENOUS
     Route: 042
     Dates: start: 20041122, end: 20050309
  5. CARBOPLATIN [Suspect]
     Indication: ADENOCARCINOMA
     Dosage: 585 MG, 1 IN 1 D, INTRAVENOUS
     Route: 042
     Dates: start: 20041122, end: 20050309
  6. ETOPOSIDE [Suspect]
     Indication: ADENOCARCINOMA
     Dosage: 100 MG, ORAL
     Route: 048
     Dates: start: 20041122, end: 20050319
  7. IRESSA [Suspect]
     Indication: ADENOCARCINOMA
     Dosage: 250 MG, 1 IN 1 D, ORAL
     Route: 048
     Dates: start: 20050320, end: 20050327
  8. FENTANYL [Concomitant]
  9. VICODIN [Concomitant]
  10. ONDANSETRON HYDROCHLORIDE [Concomitant]

REACTIONS (1)
  - MENTAL STATUS CHANGES [None]
